FAERS Safety Report 5468814-7 (Version None)
Quarter: 2007Q3

REPORT INFORMATION
  Report Type: 
  Country: None (occurrence: None)
  Receive Date: 20070926
  Receipt Date: 20070920
  Transmission Date: 20080115
  Serious: Yes (Hospitalization)
  Sender: FDA-Public Use
  Company Number: US-BOEHRINGER INGELHEIM PHARMACEUTICALS, INC.-2007-DE-05640DE

PATIENT
  Sex: Female

DRUGS (5)
  1. TELMISARTAN [Suspect]
     Indication: HYPERTENSION
     Route: 048
     Dates: start: 20070401
  2. GI262570 [Concomitant]
     Indication: HEPATITIS C
     Dates: start: 20070105
  3. GI262570 [Concomitant]
     Indication: HEPATIC FIBROSIS
  4. OXCARBAZEPINE [Concomitant]
     Indication: NEUROPATHY
     Route: 048
     Dates: end: 20070806
  5. HYDROCHLOROTHIAZIDE [Concomitant]
     Indication: HYPERTENSION
     Route: 048
     Dates: start: 20070401

REACTIONS (4)
  - BLOOD ELECTROLYTES DECREASED [None]
  - DRUG INTERACTION [None]
  - HYPONATRAEMIA [None]
  - LOSS OF CONSCIOUSNESS [None]
